FAERS Safety Report 5680370-7 (Version None)
Quarter: 2008Q1

REPORT INFORMATION
  Report Type: 
  Country: None (occurrence: None)
  Receive Date: 20080326
  Receipt Date: 20080324
  Transmission Date: 20080703
  Serious: Yes (Hospitalization)
  Sender: FDA-Public Use
  Company Number: JP-AVENTIS-200810080JP

PATIENT
  Age: 66 Year
  Sex: Female
  Weight: 55 kg

DRUGS (8)
  1. TAXOTERE [Suspect]
     Dosage: DOSE: 150 MG
     Route: 041
     Dates: start: 20070807, end: 20070807
  2. FLUOROURACIL [Concomitant]
     Dosage: DOSE: 4 COURSES
     Dates: start: 20070424
  3. EPIRUBICIN [Concomitant]
     Dosage: DOSE: 4 COURSES
     Dates: start: 20070424
  4. CYCLOPHOSPHAMIDE [Concomitant]
     Dosage: DOSE: 4 COURSES
     Dates: start: 20070424
  5. DECADRON [Concomitant]
     Route: 048
     Dates: start: 20070806, end: 20070808
  6. KYTRIL                             /01178101/ [Concomitant]
     Route: 048
     Dates: start: 20070807, end: 20070810
  7. LOXONIN                            /00890701/ [Concomitant]
     Indication: MYALGIA
     Route: 048
     Dates: start: 20070807, end: 20070816
  8. PREDNISOLONE [Concomitant]
     Indication: MYALGIA
     Dosage: DOSE QUANTITY: 25
     Route: 048
     Dates: start: 20070807, end: 20070816

REACTIONS (2)
  - NECROTISING FASCIITIS [None]
  - SEPSIS [None]
